FAERS Safety Report 9565482 (Version 2)
Quarter: 2013Q4

REPORT INFORMATION
  Report Type: Spontaneous
  Country: CA (occurrence: CA)
  Receive Date: 20130930
  Receipt Date: 20131004
  Transmission Date: 20140711
  Serious: Yes (Other)
  Sender: FDA-Public Use
  Company Number: CA-PFIZER INC-2013273930

PATIENT
  Sex: Female

DRUGS (23)
  1. LYRICA [Suspect]
     Dosage: UNK
     Dates: end: 2013
  2. NEXIUM [Suspect]
     Dosage: UNK
     Dates: end: 2013
  3. DIAMICRON [Suspect]
     Indication: DIABETES MELLITUS
     Dosage: UNK
     Dates: end: 2013
  4. LANTUS [Suspect]
     Dosage: UNK
     Dates: end: 2013
  5. DOMPERIDONE [Suspect]
     Dosage: UNK
     Dates: end: 2013
  6. RITUXAN [Suspect]
     Indication: SJOGREN^S SYNDROME
     Dosage: 1000 MG, UNK
     Dates: start: 20070525
  7. DIPHENHYDRAMINE HYDROCHLORIDE [Concomitant]
  8. ACETAMINOPHEN [Concomitant]
  9. METHYLPREDNISOLONE [Concomitant]
  10. LISINOPRIL [Concomitant]
  11. ATACAND [Concomitant]
  12. LANTUS [Concomitant]
  13. NORVASC [Concomitant]
  14. ALTACE [Concomitant]
  15. SYNTHROID [Concomitant]
  16. ELTROXIN [Concomitant]
  17. PREDNISONE [Concomitant]
  18. EZETROL [Concomitant]
  19. CRESTOR [Concomitant]
  20. VITAMIN D [Concomitant]
  21. JANUVIA [Concomitant]
  22. APO-HYDRO [Concomitant]
  23. DEPOMEDROL [Suspect]

REACTIONS (2)
  - Coronary artery occlusion [Not Recovered/Not Resolved]
  - Arthritis [Not Recovered/Not Resolved]
